APPROVED DRUG PRODUCT: PROCHLORPERAZINE MALEATE
Active Ingredient: PROCHLORPERAZINE MALEATE
Strength: EQ 5MG BASE
Dosage Form/Route: TABLET;ORAL
Application: A040101 | Product #001
Applicant: CHARTWELL RX SCIENCES LLC
Approved: Jul 19, 1996 | RLD: No | RS: No | Type: DISCN